FAERS Safety Report 4533363-7 (Version None)
Quarter: 2004Q4

REPORT INFORMATION
  Report Type: 
  Country: None (occurrence: None)
  Receive Date: 20041220
  Receipt Date: 20041220
  Transmission Date: 20050328
  Serious: Yes (Hospitalization)
  Sender: FDA-Public Use
  Company Number: None

PATIENT
  Age: 68 Year
  Sex: Male

DRUGS (1)
  1. IRESSA [Suspect]
     Indication: CARCINOMA
     Dosage: 250 MG DAILY ORAL
     Route: 048
     Dates: start: 20041103

REACTIONS (10)
  - ANURIA [None]
  - DYSURIA [None]
  - FLANK PAIN [None]
  - HAEMATURIA [None]
  - HAEMORRHAGE URINARY TRACT [None]
  - HYDRONEPHROSIS [None]
  - HYPERKALAEMIA [None]
  - METABOLIC ACIDOSIS [None]
  - URINARY TRACT OBSTRUCTION [None]
  - URINE OUTPUT DECREASED [None]
